FAERS Safety Report 14887777 (Version 1)
Quarter: 2018Q2

REPORT INFORMATION
  Report Type: Spontaneous
  Country: CN (occurrence: CN)
  Receive Date: 20180513
  Receipt Date: 20180513
  Transmission Date: 20180711
  Serious: Yes (Other)
  Sender: FDA-Public Use
  Company Number: CN-009507513-1805CHN004654

PATIENT
  Age: 52 Year
  Sex: Male

DRUGS (1)
  1. PEMBROLIZUMAB. [Suspect]
     Active Substance: PEMBROLIZUMAB
     Indication: NON-SMALL CELL LUNG CANCER
     Dosage: 2 MG/KG, EVERY 3 WEEKS
     Dates: start: 201701, end: 201703

REACTIONS (4)
  - Immune-mediated adverse reaction [Unknown]
  - Drug ineffective [Unknown]
  - Interstitial lung disease [Unknown]
  - Pericardial effusion [Unknown]

NARRATIVE: CASE EVENT DATE: 201703
